FAERS Safety Report 15930512 (Version 1)
Quarter: 2019Q1

REPORT INFORMATION
  Report Type: Report from Study
  Country: TN (occurrence: TN)
  Receive Date: 20190207
  Receipt Date: 20190207
  Transmission Date: 20190417
  Serious: Yes (Hospitalization)
  Sender: FDA-Public Use
  Company Number: TN-SA-2019SA034952

PATIENT
  Age: 77 Year
  Sex: Female

DRUGS (4)
  1. ASPEGIC [ACETYLSALICYLIC ACID] [Concomitant]
     Dosage: UNK UNK, UNK
  2. METFORMIN [Concomitant]
     Active Substance: METFORMIN HYDROCHLORIDE
     Dosage: UNK UNK, UNK
  3. INSULIN GLARGINE [Suspect]
     Active Substance: INSULIN GLARGINE
     Indication: DIABETES MELLITUS
     Dosage: 26 U, QD
     Route: 058
     Dates: start: 20181023
  4. CINCOR [Concomitant]
     Dosage: UNK UNK, UNK

REACTIONS (4)
  - Renal pain [Unknown]
  - Pyrexia [Unknown]
  - Urinary tract infection [Unknown]
  - Ureterolithiasis [Unknown]
